FAERS Safety Report 5016535-7 (Version None)
Quarter: 2006Q2

REPORT INFORMATION
  Report Type: 
  Country: None (occurrence: None)
  Receive Date: 20060602
  Receipt Date: 20060522
  Transmission Date: 20061013
  Serious: Yes (Other)
  Sender: FDA-Public Use
  Company Number: PHEH2006US06710

PATIENT
  Age: 32 Year
  Sex: Male

DRUGS (4)
  1. ELIDEL [Suspect]
     Indication: ECZEMA
     Route: 057
     Dates: start: 20060104, end: 20060301
  2. NASONEX [Suspect]
     Indication: RHINITIS ALLERGIC
     Dosage: 50 UG, UNK
     Route: 045
     Dates: start: 20060104, end: 20060301
  3. SINGULAIR [Suspect]
     Indication: HYPERSENSITIVITY
     Route: 048
     Dates: start: 20060104, end: 20060301
  4. ALLEGRA [Suspect]
     Indication: HYPERSENSITIVITY
     Route: 048
     Dates: start: 20060104, end: 20060301

REACTIONS (4)
  - CATARACT [None]
  - CATARACT OPERATION [None]
  - VISION BLURRED [None]
  - VISUAL DISTURBANCE [None]
